FAERS Safety Report 6931878-5 (Version None)
Quarter: 2010Q3

REPORT INFORMATION
  Report Type: 
  Country: None (occurrence: None)
  Receive Date: 20100819
  Receipt Date: 20100810
  Transmission Date: 20110219
  Serious: Yes (Hospitalization)
  Sender: FDA-Public Use
  Company Number: DE-ELI_LILLY_AND_COMPANY-DE201008003597

PATIENT
  Age: 72 Year
  Sex: Female
  Weight: 61 kg

DRUGS (11)
  1. GEMCITABINE HCL [Suspect]
     Indication: PANCREATIC CARCINOMA
     Dosage: 1650 MG, DAILY (1/D) ON DAY ONE AND EIGHT OF EACH CYCLE
     Route: 042
     Dates: start: 20100519
  2. SUNITINIB MALATE [Suspect]
     Indication: PANCREATIC CARCINOMA
     Dosage: 50 MG, DAILY (1/D)
     Route: 048
     Dates: start: 20100512
  3. LEVOTHYROXINE SODIUM [Concomitant]
     Dosage: 125 UG, DAILY (1/D)
     Route: 065
  4. HYDROCHLOROTHIAZIDE [Concomitant]
     Dosage: 12.5 MG, DAILY (1/D)
     Route: 065
  5. NEBIVOLOL HCL [Concomitant]
     Dosage: 5 MG, DAILY (1/D)
     Route: 065
  6. ATACAND [Concomitant]
     Dosage: 8 MG, DAILY (1/D)
     Route: 065
  7. MIRTAZAPINE [Concomitant]
     Dosage: 15 MG, DAILY (1/D)
     Route: 065
  8. SEVREDOL [Concomitant]
     Dosage: 10 MG, 2/D
     Route: 065
  9. FENTANYL [Concomitant]
     Dosage: 50 UG, PER HOUR
     Route: 065
  10. NULYTELY [Concomitant]
     Dosage: UNK, 2/D
     Route: 065
  11. DIMENHYDRINATE [Concomitant]
     Dosage: UNK, 2/D
     Route: 065

REACTIONS (3)
  - CANDIDIASIS [None]
  - MUCOSAL INFLAMMATION [None]
  - PYREXIA [None]
